FAERS Safety Report 7862964-3 (Version None)
Quarter: 2011Q4

REPORT INFORMATION
  Report Type: 
  Country: None (occurrence: None)
  Receive Date: 20111027
  Receipt Date: 20101122
  Transmission Date: 20120403
  Serious: No
  Sender: FDA-Public Use
  Company Number: US-AMGEN-USASP2010006169

PATIENT
  Age: 44 Year
  Sex: Female

DRUGS (3)
  1. ENBREL [Suspect]
     Indication: RHEUMATOID ARTHRITIS
     Dates: start: 20100928
  2. PREDNISONE [Concomitant]
  3. PLAQUENIL [Concomitant]
     Dosage: 2 MG, QD
     Dates: start: 20100715

REACTIONS (3)
  - HEADACHE [None]
  - ARTHRALGIA [None]
  - JOINT SWELLING [None]
